FAERS Safety Report 8070123-7 (Version None)
Quarter: 2012Q1

REPORT INFORMATION
  Report Type: 
  Country: None (occurrence: None)
  Receive Date: 20120125
  Receipt Date: 20120111
  Transmission Date: 20120608
  Serious: Yes (Life-Threatening, Other)
  Sender: FDA-Public Use
  Company Number: US-ROCHE-1011990

PATIENT
  Sex: Female
  Weight: 78.088 kg

DRUGS (4)
  1. METFORMIN HYDROCHLORIDE [Concomitant]
     Indication: DIABETES MELLITUS
  2. TELAPREVIR [Suspect]
     Indication: HEPATITIS C
     Dosage: 2 TABLETS
     Dates: start: 20110827, end: 20111122
  3. PEGINTERFERON ALFA-2A [Suspect]
     Indication: HEPATITIS C
     Route: 058
     Dates: start: 20110827, end: 20111122
  4. RIBAVIRIN [Suspect]
     Indication: HEPATITIS C
     Dosage: 3 TABLETS TWO TIMES A DAY
     Route: 048
     Dates: start: 20110827, end: 20111122

REACTIONS (12)
  - BLOOD IRON DECREASED [None]
  - SKIN EXFOLIATION [None]
  - ASTHENIA [None]
  - ANAEMIA [None]
  - NAUSEA [None]
  - DECREASED APPETITE [None]
  - DEHYDRATION [None]
  - VOMITING [None]
  - RENAL FAILURE ACUTE [None]
  - DEPRESSION [None]
  - DRY SKIN [None]
  - FATIGUE [None]
